FAERS Safety Report 8250485-8 (Version None)
Quarter: 2012Q2

REPORT INFORMATION
  Report Type: 
  Country: None (occurrence: None)
  Receive Date: 20120402
  Receipt Date: 20120402
  Transmission Date: 20120825
  Serious: Yes (Hospitalization, Other)
  Sender: FDA-Public Use
  Company Number: None

PATIENT
  Age: 36 Year
  Sex: Female
  Weight: 60.781 kg

DRUGS (1)
  1. BOTOX [Suspect]
     Dosage: 20 UNITS
     Route: 030
     Dates: start: 20120313, end: 20120313

REACTIONS (10)
  - HEADACHE [None]
  - PARAESTHESIA [None]
  - SENSATION OF PRESSURE [None]
  - DEPRESSION [None]
  - NAUSEA [None]
  - FATIGUE [None]
  - MALAISE [None]
  - PAIN IN EXTREMITY [None]
  - BURNING SENSATION [None]
  - ASTHENIA [None]
